FAERS Safety Report 14798559 (Version 1)
Quarter: 2018Q2

REPORT INFORMATION
  Report Type: Spontaneous
  Country: PL (occurrence: PL)
  Receive Date: 20180424
  Receipt Date: 20180424
  Transmission Date: 20180711
  Serious: Yes (Disabling, Other)
  Sender: FDA-Public Use
  Company Number: PL-TEVA-2018-PL-884747

PATIENT
  Sex: Male
  Weight: 95 kg

DRUGS (4)
  1. LEVETIRACETAM TEVA [Suspect]
     Active Substance: LEVETIRACETAM
     Dosage: 1000 MILLIGRAM DAILY;
     Route: 048
     Dates: start: 20060202
  2. TRILEPTAL [Concomitant]
     Active Substance: OXCARBAZEPINE
     Route: 048
     Dates: start: 2006
  3. TRILEPTAL [Concomitant]
     Active Substance: OXCARBAZEPINE
     Indication: EPILEPSY
     Dosage: 1800 MILLIGRAM DAILY;
     Route: 048
     Dates: start: 20160202, end: 20160225
  4. LEVETIRACETAM TEVA [Suspect]
     Active Substance: LEVETIRACETAM
     Indication: EPILEPSY
     Dosage: 500 MILLIGRAM DAILY;
     Route: 048
     Dates: start: 2006

REACTIONS (4)
  - Tremor [Unknown]
  - Epilepsy [Unknown]
  - Anxiety disorder [Recovered/Resolved]
  - Loss of consciousness [Unknown]
